FAERS Safety Report 6821579-6 (Version None)
Quarter: 2010Q3

REPORT INFORMATION
  Report Type: 
  Country: None (occurrence: None)
  Receive Date: 20100707
  Receipt Date: 20090612
  Transmission Date: 20110219
  Serious: No
  Sender: FDA-Public Use
  Company Number: US-PFIZER INC-2009178245

PATIENT
  Sex: Female
  Weight: 68.934 kg

DRUGS (3)
  1. ZOLOFT [Suspect]
     Indication: ADJUSTMENT DISORDER WITH ANXIETY
     Dosage: 25 MG, 1X/DAY
     Route: 048
     Dates: start: 20090210
  2. XANAX [Suspect]
     Indication: ANXIETY
     Dosage: UNK
     Dates: start: 20090210
  3. LOESTRIN 1.5/30 [Concomitant]
     Dosage: UNK

REACTIONS (3)
  - AKATHISIA [None]
  - HYPERHIDROSIS [None]
  - NERVOUSNESS [None]
